FAERS Safety Report 21743164 (Version 1)
Quarter: 2022Q4

REPORT INFORMATION
  Report Type: Report from Study
  Country: US (occurrence: US)
  Receive Date: 20221217
  Receipt Date: 20221217
  Transmission Date: 20230113
  Serious: No
  Sender: FDA-Public Use
  Company Number: US-ABBVIE-22K-163-4504155-00

PATIENT
  Sex: Male
  Weight: 85.728 kg

DRUGS (12)
  1. SKYRIZI [Suspect]
     Active Substance: RISANKIZUMAB-RZAA
     Indication: Psoriasis
     Dosage: 150MG?WEEK 0
     Route: 058
     Dates: start: 20210525
  2. SKYRIZI [Suspect]
     Active Substance: RISANKIZUMAB-RZAA
     Dosage: 150MG?WEEK 4
     Route: 058
  3. MINERALS\VITAMINS [Concomitant]
     Active Substance: MINERALS\VITAMINS
     Indication: Product used for unknown indication
  4. MINERALS\VITAMINS [Concomitant]
     Active Substance: MINERALS\VITAMINS
     Indication: Product used for unknown indication
  5. ATORVASTATIN CALCIUM [Concomitant]
     Active Substance: ATORVASTATIN CALCIUM
     Indication: Product used for unknown indication
  6. NEXIUM [Concomitant]
     Active Substance: ESOMEPRAZOLE MAGNESIUM
     Indication: Product used for unknown indication
  7. ESOMEPRAZOLE MAGNESIUM [Concomitant]
     Active Substance: ESOMEPRAZOLE MAGNESIUM
     Indication: Gastrooesophageal reflux disease
     Dosage: 40MG?STOP DATE TEXT: CURRENT
     Route: 048
     Dates: start: 2000, end: 2022
  8. TRIAMCINOLONE ACETONIDE [Concomitant]
     Active Substance: TRIAMCINOLONE ACETONIDE
     Indication: Product used for unknown indication
  9. Psyllium fibers supplement [Concomitant]
     Indication: Dyspepsia
     Dosage: TIME INTERVAL: 0.33333333 DAYS
     Route: 048
  10. Omega 3 FISH OIL 340-1000MG [Concomitant]
     Indication: Blood cholesterol abnormal
     Dosage: TIME INTERVAL: 0.33333333 DAYS: 340-1000MG?START DATE TEXT: LONG TERM?STOP DATE TEXT: CURRENT
     Route: 048
     Dates: end: 2022
  11. TACROLIMUS 0.1 % OINT. (G) [Concomitant]
     Indication: Product used for unknown indication
     Dosage: TACROLIMUS 0.1 %
  12. FIBER 0.52G CAPSULE [Concomitant]
     Indication: Product used for unknown indication
     Dosage: 0.52G

REACTIONS (2)
  - Psoriasis [Recovered/Resolved]
  - Therapeutic response shortened [Unknown]
